FAERS Safety Report 10268234 (Version 2)
Quarter: 2014Q3

REPORT INFORMATION
  Report Type: Spontaneous
  Country: DE (occurrence: DE)
  Receive Date: 20140630
  Receipt Date: 20140704
  Transmission Date: 20150326
  Serious: Yes (Life-Threatening, Hospitalization, Other)
  Sender: FDA-Public Use
  Company Number: DE-009507513-1406DEU012479

PATIENT
  Age: 51 Year
  Sex: Male
  Weight: 80 kg

DRUGS (10)
  1. RIBAVIRIN. [Suspect]
     Active Substance: RIBAVIRIN
     Dosage: 800 MG, QD
     Route: 065
     Dates: start: 201405, end: 2014
  2. ATRIPLA [Suspect]
     Active Substance: EFAVIRENZ\EMTRICITABINE\TENOFOVIR DISOPROXIL FUMARATE
     Indication: HIV INFECTION
     Dosage: 1 DF QD
     Route: 048
     Dates: start: 200905
  3. NOVALGIN (ACETAMINOPHEN (+) CAFFEINE (+) PROPYPHENAZONE) [Concomitant]
     Dosage: UNK
     Dates: start: 20140502
  4. SPIRONOLACTONE. [Concomitant]
     Active Substance: SPIRONOLACTONE
     Dosage: UNK
     Dates: start: 201310
  5. SOVALDI [Suspect]
     Active Substance: SOFOSBUVIR
     Indication: HEPATITIS C
     Dosage: 400 MG, UNK
     Route: 065
     Dates: start: 20140331, end: 2014
  6. TORSEMIDE. [Concomitant]
     Active Substance: TORSEMIDE
     Dosage: UNK
     Dates: start: 201310
  7. ORNITHINE [Concomitant]
     Active Substance: ORNITHINE
  8. RIBAVIRIN. [Suspect]
     Active Substance: RIBAVIRIN
     Indication: HEPATITIS C
     Dosage: 1200 MG, QD
     Route: 065
     Dates: start: 20140331, end: 201405
  9. PROPRANOLOL HYDROCHLORIDE. [Concomitant]
     Active Substance: PROPRANOLOL HYDROCHLORIDE
     Dosage: UNK
     Dates: start: 201311
  10. CLEXANE (ENOXAPARIN SODIUM) [Concomitant]
     Active Substance: ENOXAPARIN SODIUM
     Dosage: UNK
     Dates: start: 20140508

REACTIONS (12)
  - Oedema peripheral [Unknown]
  - Hepatic cirrhosis [Unknown]
  - Metabolic acidosis [Unknown]
  - Diabetes mellitus [Unknown]
  - Hepatic encephalopathy [Recovering/Resolving]
  - Thrombosis [Recovered/Resolved]
  - Hepatorenal syndrome [Unknown]
  - Ascites [Unknown]
  - Renal failure [Recovered/Resolved]
  - Hyperkalaemia [Unknown]
  - Varices oesophageal [Unknown]
  - Anaemia [Unknown]

NARRATIVE: CASE EVENT DATE: 2014
